FAERS Safety Report 16211057 (Version 1)
Quarter: 2019Q2

REPORT INFORMATION
  Report Type: Spontaneous
  Country: AE (occurrence: AE)
  Receive Date: 20190418
  Receipt Date: 20190418
  Transmission Date: 20190711
  Serious: Yes (Life-Threatening, Other)
  Sender: FDA-Public Use
  Company Number: AE-SA-2018SA023897

PATIENT
  Age: 59 Year
  Sex: Male

DRUGS (1)
  1. FABRAZYME [Suspect]
     Active Substance: AGALSIDASE BETA
     Dosage: 1 MG/KG,QOW
     Route: 041

REACTIONS (2)
  - Dyspnoea [Recovered/Resolved]
  - Renal transplant [Unknown]

NARRATIVE: CASE EVENT DATE: 2017
